FAERS Safety Report 23390007 (Version 1)
Quarter: 2024Q1

REPORT INFORMATION
  Report Type: Other
  Country: US (occurrence: None)
  Receive Date: 20240111
  Receipt Date: 20240111
  Transmission Date: 20240410
  Serious: Yes (Other)
  Sender: FDA-Public Use
  Company Number: US-ROCHE-3325909

PATIENT
  Age: 75 Year
  Sex: Female
  Weight: 85.3 kg

DRUGS (14)
  1. XOLAIR [Suspect]
     Active Substance: OMALIZUMAB
     Indication: Asthma
     Route: 058
  2. XOLAIR [Suspect]
     Active Substance: OMALIZUMAB
     Indication: Chronic obstructive pulmonary disease
  3. XOLAIR [Suspect]
     Active Substance: OMALIZUMAB
     Indication: Asthma
     Dosage: STRENGTH: 150 AND 75
     Route: 058
  4. XOLAIR [Suspect]
     Active Substance: OMALIZUMAB
  5. XOLAIR [Suspect]
     Active Substance: OMALIZUMAB
  6. XOLAIR [Suspect]
     Active Substance: OMALIZUMAB
     Indication: Osteoarthritis
  7. XOLAIR [Suspect]
     Active Substance: OMALIZUMAB
  8. XOLAIR [Suspect]
     Active Substance: OMALIZUMAB
  9. XOLAIR [Suspect]
     Active Substance: OMALIZUMAB
     Indication: Rheumatoid arthritis
  10. XOLAIR [Suspect]
     Active Substance: OMALIZUMAB
  11. XOLAIR [Suspect]
     Active Substance: OMALIZUMAB
  12. XOLAIR [Suspect]
     Active Substance: OMALIZUMAB
     Indication: Asthma
  13. XOLAIR [Suspect]
     Active Substance: OMALIZUMAB
  14. XOLAIR [Suspect]
     Active Substance: OMALIZUMAB

REACTIONS (1)
  - Deafness [Unknown]
